FAERS Safety Report 14610133 (Version 5)
Quarter: 2018Q4

REPORT INFORMATION
  Report Type: Spontaneous
  Country: ES (occurrence: ES)
  Receive Date: 20180307
  Receipt Date: 20181002
  Transmission Date: 20190204
  Serious: Yes (Other)
  Sender: FDA-Public Use
  Company Number: ES-ELI_LILLY_AND_COMPANY-ES201802011865

PATIENT
  Age: 47 Year
  Sex: Male

DRUGS (10)
  1. QUTENZA [Concomitant]
     Active Substance: CAPSAICIN
     Indication: PROCEDURAL PAIN
     Dosage: UNK, UNKNOWN
     Route: 065
     Dates: start: 201610
  2. QUTENZA [Concomitant]
     Active Substance: CAPSAICIN
     Dosage: UNK, UNKNOWN
     Route: 065
     Dates: start: 201702
  3. STRATTERA [Suspect]
     Active Substance: ATOMOXETINE HYDROCHLORIDE
     Indication: PSYCHOMOTOR HYPERACTIVITY
     Dosage: 1 DF, DAILY
     Route: 065
     Dates: start: 2013
  4. LYRICA [Suspect]
     Active Substance: PREGABALIN
     Indication: HERNIA
  5. QUTENZA [Concomitant]
     Active Substance: CAPSAICIN
     Dosage: UNK, UNKNOWN
     Route: 065
     Dates: start: 20170703
  6. TERBASMIN                          /00199201/ [Concomitant]
     Indication: PRODUCT USED FOR UNKNOWN INDICATION
     Dosage: UNK, PRN
     Route: 065
  7. ZALDIAR [Concomitant]
     Active Substance: ACETAMINOPHEN\TRAMADOL HYDROCHLORIDE
     Indication: PRODUCT USED FOR UNKNOWN INDICATION
     Dosage: UNK, PRN
     Route: 065
  8. LYRICA [Suspect]
     Active Substance: PREGABALIN
     Indication: NEURALGIA
     Dosage: 75 MG, BID
     Route: 048
     Dates: start: 201610, end: 20170702
  9. QUTENZA [Concomitant]
     Active Substance: CAPSAICIN
     Dosage: UNK
  10. NOLOTIL                            /00473101/ [Concomitant]
     Active Substance: METAMIZOLE\PROPOXYPHENE
     Indication: PRODUCT USED FOR UNKNOWN INDICATION
     Dosage: UNK, PRN
     Route: 065

REACTIONS (7)
  - Suicidal ideation [Unknown]
  - Visual field defect [Not Recovered/Not Resolved]
  - Blindness [Unknown]
  - Vision blurred [Unknown]
  - Condition aggravated [Not Recovered/Not Resolved]
  - Leukocytosis [Unknown]
  - Dizziness [Unknown]

NARRATIVE: CASE EVENT DATE: 2017
